FAERS Safety Report 10168475 (Version 1)
Quarter: 2014Q2

REPORT INFORMATION
  Report Type: Report from Study
  Country: US (occurrence: US)
  Receive Date: 20140513
  Receipt Date: 20140513
  Transmission Date: 20141212
  Serious: Yes (Other)
  Sender: FDA-Public Use
  Company Number: US-BIOGENIDEC-2014BI042505

PATIENT
  Sex: Male

DRUGS (1)
  1. TYSABRI [Suspect]
     Indication: MULTIPLE SCLEROSIS
     Route: 042
     Dates: start: 20140121

REACTIONS (4)
  - Mental impairment [Not Recovered/Not Resolved]
  - Suicidal ideation [Not Recovered/Not Resolved]
  - Memory impairment [Not Recovered/Not Resolved]
  - Hallucination, auditory [Not Recovered/Not Resolved]
